FAERS Safety Report 15101501 (Version 2)
Quarter: 2018Q3

REPORT INFORMATION
  Report Type: Report from Study
  Country: CA (occurrence: CA)
  Receive Date: 20180703
  Receipt Date: 20180705
  Transmission Date: 20181010
  Serious: Yes (Other)
  Sender: FDA-Public Use
  Company Number: CA-GLAXOSMITHKLINE-CA2018GSK105151

PATIENT
  Sex: Female

DRUGS (5)
  1. MEPOLIZUMAB [Suspect]
     Active Substance: MEPOLIZUMAB
     Indication: ASTHMA
     Dosage: 100 MG, Z, (MONTHLY)
     Route: 042
  2. SYMBICORT [Suspect]
     Active Substance: BUDESONIDE\FORMOTEROL FUMARATE DIHYDRATE
     Indication: ASTHMA
     Dosage: UNK
  3. VENTOLIN [Suspect]
     Active Substance: ALBUTEROL SULFATE
     Indication: ASTHMA
     Dosage: UNK
  4. PREDNISONE. [Concomitant]
     Active Substance: PREDNISONE
     Indication: PRODUCT USED FOR UNKNOWN INDICATION
     Dosage: UNK
  5. MEPOLIZUMAB [Suspect]
     Active Substance: MEPOLIZUMAB
     Dosage: 100 MG, Z, (MONTHLY)
     Route: 042

REACTIONS (11)
  - Sputum discoloured [Not Recovered/Not Resolved]
  - Viral infection [Unknown]
  - Pneumonia [Recovering/Resolving]
  - Productive cough [Not Recovered/Not Resolved]
  - Malaise [Unknown]
  - Drug dose omission [Unknown]
  - Nasopharyngitis [Unknown]
  - Speech disorder [Unknown]
  - Dyspnoea [Recovered/Resolved]
  - Oropharyngeal pain [Unknown]
  - Asthma [Unknown]
